FAERS Safety Report 25130451 (Version 3)
Quarter: 2025Q3

REPORT INFORMATION
  Report Type: Spontaneous
  Country: EU (occurrence: EU)
  Receive Date: 20250327
  Receipt Date: 20250805
  Transmission Date: 20251021
  Serious: Yes (Other)
  Sender: SANDOZ
  Company Number: EU-ALLIANCE-2025-0147

PATIENT
  Age: 31 Year
  Sex: Male

DRUGS (6)
  1. BOLDENONE [Suspect]
     Active Substance: BOLDENONE
     Indication: Product used for unknown indication
     Route: 065
  2. SOMATROPIN [Suspect]
     Active Substance: SOMATROPIN
     Indication: Product used for unknown indication
     Route: 065
  3. STANOZOLOL [Suspect]
     Active Substance: STANOZOLOL
     Indication: Product used for unknown indication
     Route: 065
  4. TESTOSTERONE [Suspect]
     Active Substance: TESTOSTERONE
     Indication: Product used for unknown indication
     Route: 065
  5. TESTOSTERONE PROPIONATE [Suspect]
     Active Substance: TESTOSTERONE PROPIONATE
     Indication: Product used for unknown indication
     Route: 065
  6. TRENBOLONE [Suspect]
     Active Substance: TRENBOLONE
     Indication: Product used for unknown indication
     Route: 065

REACTIONS (2)
  - Toxic cardiomyopathy [Not Recovered/Not Resolved]
  - Drug abuse [Unknown]
